FAERS Safety Report 26214998 (Version 1)
Quarter: 2025Q4

REPORT INFORMATION
  Report Type: Spontaneous
  Country: US (occurrence: US)
  Receive Date: 20251230
  Receipt Date: 20251230
  Transmission Date: 20260117
  Serious: No
  Sender: Pyros Pharmaceuticals
  Company Number: US-PYROS PHARMACEUTICALS, INC-20250901220

PATIENT
  Age: 0 Year
  Sex: Male

DRUGS (1)
  1. VIGAFYDE [Suspect]
     Active Substance: VIGABATRIN
     Indication: Infantile spasms
     Dosage: 750 MG (7.5 ML), BID
     Route: 048
     Dates: start: 20250906

REACTIONS (2)
  - Ocular hyperaemia [Unknown]
  - Pruritus [Unknown]

NARRATIVE: CASE EVENT DATE: 20250901
